FAERS Safety Report 21985908 (Version 2)
Quarter: 2023Q1

REPORT INFORMATION
  Report Type: Report from Study
  Country: ES (occurrence: ES)
  Receive Date: 20230213
  Receipt Date: 20230324
  Transmission Date: 20230417
  Serious: No
  Sender: FDA-Public Use
  Company Number: ES-TAKEDA-2023TUS013632

PATIENT
  Age: 3 Year
  Sex: Male

DRUGS (12)
  1. TEDUGLUTIDE [Suspect]
     Active Substance: TEDUGLUTIDE
     Indication: Short-bowel syndrome
     Dosage: 0.25 MILLIGRAM, QD
     Route: 042
     Dates: start: 20200804, end: 20220616
  2. TEDUGLUTIDE [Suspect]
     Active Substance: TEDUGLUTIDE
     Indication: Short-bowel syndrome
     Dosage: 0.25 MILLIGRAM, QD
     Route: 042
     Dates: start: 20200804, end: 20220616
  3. TEDUGLUTIDE [Suspect]
     Active Substance: TEDUGLUTIDE
     Indication: Short-bowel syndrome
     Dosage: 0.25 MILLIGRAM, QD
     Route: 042
     Dates: start: 20200804, end: 20220616
  4. TEDUGLUTIDE [Suspect]
     Active Substance: TEDUGLUTIDE
     Indication: Short-bowel syndrome
     Dosage: 0.25 MILLIGRAM, QD
     Route: 042
     Dates: start: 20200804, end: 20220616
  5. TEDUGLUTIDE [Suspect]
     Active Substance: TEDUGLUTIDE
     Dosage: 0.5 MILLIGRAM, QD
     Route: 042
     Dates: start: 20220616
  6. TEDUGLUTIDE [Suspect]
     Active Substance: TEDUGLUTIDE
     Dosage: 0.5 MILLIGRAM, QD
     Route: 042
     Dates: start: 20220616
  7. TEDUGLUTIDE [Suspect]
     Active Substance: TEDUGLUTIDE
     Dosage: 0.5 MILLIGRAM, QD
     Route: 042
     Dates: start: 20220616
  8. TEDUGLUTIDE [Suspect]
     Active Substance: TEDUGLUTIDE
     Dosage: 0.5 MILLIGRAM, QD
     Route: 042
     Dates: start: 20220616
  9. LOPERAMIDE HYDROCHLORIDE [Concomitant]
     Active Substance: LOPERAMIDE HYDROCHLORIDE
     Indication: Prophylaxis against diarrhoea
     Dosage: 0.6 MILLIGRAM, TID
     Route: 048
     Dates: start: 20211006, end: 20220404
  10. LOPERAMIDE HYDROCHLORIDE [Concomitant]
     Active Substance: LOPERAMIDE HYDROCHLORIDE
     Dosage: 0.8 MILLIGRAM, TID
     Route: 048
     Dates: start: 20220404
  11. URSODIOL [Concomitant]
     Active Substance: URSODIOL
     Indication: Lithiasis
     Dosage: 76 MILLIGRAM, TID
     Route: 048
     Dates: start: 20221107
  12. VITAMIN D [Concomitant]
     Active Substance: VITAMIN D NOS
     Indication: Vitamin D deficiency
     Dosage: 800 INTERNATIONAL UNIT, QD
     Route: 048
     Dates: start: 20221107

REACTIONS (1)
  - Cholelithiasis [Not Recovered/Not Resolved]

NARRATIVE: CASE EVENT DATE: 20221107
